FAERS Safety Report 7809554-6 (Version None)
Quarter: 2011Q4

REPORT INFORMATION
  Report Type: 
  Country: None (occurrence: None)
  Receive Date: 20111012
  Receipt Date: 20111007
  Transmission Date: 20120403
  Serious: Yes (Death, Other)
  Sender: FDA-Public Use
  Company Number: PHHY2011KR88945

PATIENT
  Age: 17 Year
  Sex: Male

DRUGS (11)
  1. ANTI-THYMOCYTE GLOBULIN NOS [Concomitant]
     Dosage: UNK UKN, UNK
  2. AMPHOTERICIN B [Concomitant]
     Indication: PNEUMONIA FUNGAL
     Dosage: UNK UKN, UNK
  3. LEVOFLOXACIN [Concomitant]
     Dosage: UNK UKN, UNK
  4. RIFAMPIN [Concomitant]
     Dosage: UNK UKN, UNK
  5. PYRAZINAMIDE [Concomitant]
     Dosage: UNK UKN, UNK
  6. CYCLOSPORINE [Suspect]
     Dosage: UNK UKN, UNK
  7. CYTARABINE [Concomitant]
     Dosage: UNK UKN, UNK
  8. ETHAMBUTOL HYDROCHLORIDE [Concomitant]
     Dosage: UNK UKN, UNK
  9. CYCLOSPORINE [Concomitant]
     Dosage: UNK UKN, UNK
  10. ISONIAZID [Concomitant]
     Dosage: UNK UKN, UNK
  11. CYCLOSERINE [Concomitant]
     Dosage: UNK UKN, UNK

REACTIONS (9)
  - FUNGAL INFECTION [None]
  - ACUTE RESPIRATORY DISTRESS SYNDROME [None]
  - PYREXIA [None]
  - LUNG DISORDER [None]
  - PULMONARY TUBERCULOSIS [None]
  - LUNG INFILTRATION [None]
  - PNEUMONIA FUNGAL [None]
  - NATURAL KILLER T CELL COUNT INCREASED [None]
  - DYSPNOEA [None]
